FAERS Safety Report 24633433 (Version 4)
Quarter: 2025Q3

REPORT INFORMATION
  Report Type: Spontaneous
  Country: US (occurrence: US)
  Receive Date: 20241118
  Receipt Date: 20250808
  Transmission Date: 20251021
  Serious: Yes (Hospitalization, Other)
  Sender: SANOFI AVENTIS
  Company Number: US-SA-2024SA330735

PATIENT
  Age: 10 Year
  Sex: Female

DRUGS (2)
  1. DUPIXENT [Suspect]
     Active Substance: DUPILUMAB
     Indication: Eczema
     Dosage: 200 MG, QOW
     Route: 058
     Dates: start: 202410, end: 2025
  2. DUPIXENT [Suspect]
     Active Substance: DUPILUMAB
     Dosage: 200 MG, QOW
     Route: 058
     Dates: start: 2025

REACTIONS (15)
  - Crohn^s disease [Unknown]
  - Arthralgia [Unknown]
  - Pyrexia [Unknown]
  - Weight decreased [Unknown]
  - Diarrhoea [Unknown]
  - Activities of daily living decreased [Unknown]
  - Mood altered [Unknown]
  - Rebound eczema [Unknown]
  - Erythema nodosum [Unknown]
  - Dermatitis [Unknown]
  - Rash [Unknown]
  - Eczema [Unknown]
  - Pain [Unknown]
  - Pruritus [Unknown]
  - Incorrect dose administered [Unknown]

NARRATIVE: CASE EVENT DATE: 20240101
